FAERS Safety Report 25980783 (Version 3)
Quarter: 2025Q4

REPORT INFORMATION
  Report Type: Spontaneous
  Country: US (occurrence: US)
  Receive Date: 20251030
  Receipt Date: 20251215
  Transmission Date: 20260118
  Serious: Yes (Other)
  Sender: BLUEPRINT MEDICINES
  Company Number: US-Blueprint Medicines Corporation-2025-AER-02296

PATIENT
  Age: 71 Year
  Sex: Female

DRUGS (3)
  1. AYVAKIT [Suspect]
     Active Substance: AVAPRITINIB
     Indication: Haematopoietic neoplasm
     Route: 065
     Dates: start: 20250614
  2. AYVAKIT [Suspect]
     Active Substance: AVAPRITINIB
     Route: 065
     Dates: start: 20251208
  3. SPIKEVAX [Suspect]
     Active Substance: CX-046684
     Indication: COVID-19 prophylaxis
     Dosage: 1 DOSAGE FORM
     Route: 065

REACTIONS (7)
  - Hypothyroidism [Unknown]
  - Haematopoietic neoplasm [Unknown]
  - Taste disorder [Unknown]
  - Memory impairment [Unknown]
  - Rash [Not Recovered/Not Resolved]
  - Oral infection [Unknown]
  - Reaction to previous exposure to any vaccine [Unknown]
